FAERS Safety Report 5657516-X (Version None)
Quarter: 2008Q1

REPORT INFORMATION
  Report Type: 
  Country: None (occurrence: None)
  Receive Date: 20080310
  Receipt Date: 20080229
  Transmission Date: 20080703
  Serious: Yes (Other)
  Sender: FDA-Public Use
  Company Number: US-PFIZER INC-2008019422

PATIENT
  Sex: Male
  Weight: 89.4 kg

DRUGS (2)
  1. LIPITOR [Suspect]
     Indication: BLOOD CHOLESTEROL INCREASED
     Dosage: DAILY DOSE:10MG
     Dates: start: 20040101, end: 20060401
  2. ATACAND [Concomitant]

REACTIONS (8)
  - ABNORMAL DREAMS [None]
  - BLOOD CHOLESTEROL INCREASED [None]
  - CATARACT [None]
  - DISTURBANCE IN ATTENTION [None]
  - DYSGEUSIA [None]
  - INSOMNIA [None]
  - MEMORY IMPAIRMENT [None]
  - PAIN [None]
